FAERS Safety Report 21688143 (Version 1)
Quarter: 2022Q4

REPORT INFORMATION
  Report Type: Spontaneous
  Country: PL (occurrence: PL)
  Receive Date: 20221206
  Receipt Date: 20221206
  Transmission Date: 20230112
  Serious: Yes (Hospitalization, Other)
  Sender: FDA-Public Use
  Company Number: None

PATIENT
  Age: 76 Year
  Sex: Male

DRUGS (12)
  1. AZACITIDINE [Suspect]
     Active Substance: AZACITIDINE
     Indication: Acute myeloid leukaemia
     Dates: start: 20201130, end: 20201206
  2. VENETOCLAX [Suspect]
     Active Substance: VENETOCLAX
     Indication: Infection prophylaxis
     Dates: start: 20201130, end: 20201130
  3. PEVONEDISTAT [Suspect]
     Active Substance: PEVONEDISTAT
     Indication: Acute myeloid leukaemia
     Dates: start: 20201130, end: 20210108
  4. AMOXICILLIN TRIHYDRATE [Concomitant]
     Active Substance: AMOXICILLIN
     Indication: Infection prophylaxis
     Dates: start: 20201126, end: 20201130
  5. ZOFRAN [Concomitant]
     Active Substance: ONDANSETRON HYDROCHLORIDE
     Indication: Prophylaxis of nausea and vomiting
     Dates: start: 20201130, end: 20201206
  6. POTASSIUM CHLORIDE [Concomitant]
     Active Substance: POTASSIUM CHLORIDE
     Indication: Prophylaxis
     Dates: start: 20201130, end: 20201206
  7. SODIUM CHLORIDE [Concomitant]
     Active Substance: SODIUM CHLORIDE
     Indication: Tumour lysis syndrome
     Dosage: DRAGEES
     Dates: start: 20201130, end: 20201206
  8. FUROSEMIDE [Concomitant]
     Active Substance: FUROSEMIDE
     Indication: Prophylaxis
     Dates: start: 20201130, end: 20201206
  9. ALLOPURINOL [Concomitant]
     Active Substance: ALLOPURINOL
     Indication: Prophylaxis
     Dates: start: 20201130, end: 20201206
  10. CIPROFLOXACIN [Concomitant]
     Active Substance: CIPROFLOXACIN
     Indication: Infection prophylaxis
     Dates: start: 20201201, end: 20201208
  11. VENETOCLAX [Suspect]
     Active Substance: VENETOCLAX
     Indication: Infection prophylaxis
     Dates: start: 20201201, end: 20201201
  12. VENETOCLAX [Suspect]
     Active Substance: VENETOCLAX
     Indication: Infection prophylaxis
     Dates: start: 20201202, end: 20201202

REACTIONS (3)
  - Systemic candida [Recovered/Resolved]
  - Erythema multiforme [Recovered/Resolved]
  - Febrile neutropenia [Recovered/Resolved]

NARRATIVE: CASE EVENT DATE: 20201203
